FAERS Safety Report 5235991-2 (Version None)
Quarter: 2007Q1

REPORT INFORMATION
  Report Type: 
  Country: None (occurrence: None)
  Receive Date: 20061208
  Receipt Date: 20060519
  Transmission Date: 20070707
  Serious: Yes (Other)
  Sender: FDA-Public Use
  Company Number: 2006UW09822

PATIENT
  Age: 47 Year
  Sex: Male
  Weight: 64.863 kg

DRUGS (17)
  1. CRESTOR [Suspect]
     Indication: HYPERCHOLESTEROLAEMIA
     Dosage: 10 MG QD PO
     Route: 048
  2. NIACIN [Concomitant]
  3. FISH OIL [Concomitant]
  4. MAGNESIUM OXIDE [Concomitant]
  5. ASCORBIC ACID [Concomitant]
  6. COENZYME Q10 [Concomitant]
  7. MAXEPA [Concomitant]
  8. MEDROL [Concomitant]
  9. TYLENOL [Concomitant]
  10. CHROMIUM POLYNICOTINATE [Concomitant]
  11. FLONASE [Concomitant]
  12. COSAMIN DS [Concomitant]
  13. IMODIUM [Concomitant]
  14. PAREGORIC [Concomitant]
  15. DIAZEPAM [Concomitant]
  16. CALCIUM [Concomitant]
  17. VITAMIN CAP [Concomitant]

REACTIONS (3)
  - BLOOD TRIGLYCERIDES INCREASED [None]
  - LIPOPROTEIN (A) INCREASED [None]
  - MYALGIA [None]
